FAERS Safety Report 7637670-0 (Version None)
Quarter: 2011Q3

REPORT INFORMATION
  Report Type: 
  Country: None (occurrence: None)
  Receive Date: 20110726
  Receipt Date: 20110514
  Transmission Date: 20111222
  Serious: No
  Sender: FDA-Public Use
  Company Number: US-AMGEN-USASP2011025155

PATIENT
  Age: 56 Year
  Sex: Male

DRUGS (6)
  1. CALCITRIOL [Concomitant]
  2. EPOGEN [Suspect]
     Indication: RENAL FAILURE CHRONIC
     Dosage: 10000 IU, 2 TIMES/WK
     Dates: start: 20110401
  3. CARDURA [Concomitant]
  4. COZAAR [Concomitant]
  5. TOPROL-XL [Concomitant]
  6. FERROUS SULFATE TAB [Concomitant]

REACTIONS (3)
  - HAEMATOCRIT ABNORMAL [None]
  - INCORRECT STORAGE OF DRUG [None]
  - HAEMOGLOBIN ABNORMAL [None]
